FAERS Safety Report 24269929 (Version 2)
Quarter: 2024Q3

REPORT INFORMATION
  Report Type: Spontaneous
  Country: US (occurrence: None)
  Receive Date: 20240830
  Receipt Date: 20240918
  Transmission Date: 20241016
  Serious: Yes (Other)
  Sender: ASTRAZENECA
  Company Number: 2024A192614

PATIENT
  Age: 7 Year
  Sex: Female

DRUGS (1)
  1. SYMBICORT [Suspect]
     Active Substance: BUDESONIDE\FORMOTEROL FUMARATE DIHYDRATE
     Route: 055

REACTIONS (9)
  - Systemic scleroderma [Unknown]
  - Pneumonia [Unknown]
  - Asthma [Unknown]
  - Cough [Unknown]
  - Bronchitis [Unknown]
  - Device use issue [Unknown]
  - Incorrect dose administered by device [Unknown]
  - Tuberculosis [Unknown]
  - Wrong technique in device usage process [Unknown]
